FAERS Safety Report 22126951 (Version 1)
Quarter: 2023Q1

REPORT INFORMATION
  Report Type: Spontaneous
  Country: IN (occurrence: IN)
  Receive Date: 20230322
  Receipt Date: 20230322
  Transmission Date: 20230417
  Serious: Yes (Life-Threatening)
  Sender: FDA-Public Use
  Company Number: IN-BAUSCH-BL-2023-004563

PATIENT
  Age: 77 Year
  Sex: Male

DRUGS (3)
  1. LORAZEPAM [Suspect]
     Active Substance: LORAZEPAM
     Indication: Toxic leukoencephalopathy
     Route: 065
  2. NICOTINE [Concomitant]
     Active Substance: NICOTINE
     Indication: Nicotine dependence
     Dosage: FOR MORE THAN 30 YEARS
  3. ALCOHOL [Concomitant]
     Active Substance: ALCOHOL
     Indication: Alcohol use
     Dosage: FOR MORE THAN 30 YEARS

REACTIONS (1)
  - Therapy partial responder [Unknown]
